FAERS Safety Report 6399983-2 (Version None)
Quarter: 2009Q4

REPORT INFORMATION
  Report Type: 
  Country: None (occurrence: None)
  Receive Date: 20091014
  Receipt Date: 20091002
  Transmission Date: 20100525
  Serious: Yes (Hospitalization, Other)
  Sender: FDA-Public Use
  Company Number: TR-ELI_LILLY_AND_COMPANY-TR200910000657

PATIENT
  Sex: Female

DRUGS (10)
  1. HUMULIN R [Suspect]
     Indication: DIABETES MELLITUS
     Dosage: 38 U, 3/D
     Route: 058
     Dates: start: 20080101
  2. LANTUS [Concomitant]
     Indication: DIABETES MELLITUS
     Dosage: 40 U, DAILY (1/D)
     Route: 058
     Dates: start: 20080101
  3. DIAMICRON [Concomitant]
     Indication: DIABETES MELLITUS
     Dosage: UNK UNK, 2/D
     Route: 048
  4. BELOC /00376903/ [Concomitant]
     Dosage: UNK UNK, DAILY (1/D)
     Route: 048
  5. ECOPIRIN [Concomitant]
     Dosage: UNK UNK, DAILY (1/D)
     Route: 048
  6. LIPOFENE [Concomitant]
     Dosage: UNK UNK, DAILY (1/D)
     Route: 048
  7. ALDACTAZIDE [Concomitant]
     Dosage: UNK UNK, DAILY (1/D)
     Route: 048
  8. MONODUR [Concomitant]
     Dosage: 0.5 D/F, DAILY (1/D)
     Route: 048
  9. CLOPIDOGREL BISULFATE [Concomitant]
     Dosage: UNK UNK, DAILY (1/D)
     Route: 048
  10. PANTOPRAZOLE SODIUM [Concomitant]
     Dosage: UNK UNK, DAILY (1/D)
     Route: 048

REACTIONS (2)
  - CORONARY ARTERY EMBOLISM [None]
  - WEIGHT INCREASED [None]
